FAERS Safety Report 4749432-2 (Version None)
Quarter: 2005Q3

REPORT INFORMATION
  Report Type: 
  Country: None (occurrence: None)
  Receive Date: 20050822
  Receipt Date: 20050420
  Transmission Date: 20060218
  Serious: Yes (Other)
  Sender: FDA-Public Use
  Company Number: PHEH2005US04574

PATIENT
  Age: 66 Year
  Sex: Female

DRUGS (4)
  1. AREDIA [Suspect]
     Indication: BREAST CANCER
     Dosage: 90MG Q28 DAYS
     Route: 042
     Dates: start: 20010501, end: 20020401
  2. ZOMETA [Suspect]
     Indication: BREAST CANCER
     Dosage: 4MG Q28 DAYS
     Dates: start: 20020501, end: 20050101
  3. CHEMOTHERAPEUTICS,OTHER [Concomitant]
  4. CORTICOSTEROIDS [Concomitant]

REACTIONS (1)
  - ASEPTIC NECROSIS BONE [None]
